FAERS Safety Report 7641819-3 (Version None)
Quarter: 2011Q3

REPORT INFORMATION
  Report Type: 
  Country: None (occurrence: None)
  Receive Date: 20110728
  Receipt Date: 20110720
  Transmission Date: 20111222
  Serious: Yes (Hospitalization)
  Sender: FDA-Public Use
  Company Number: TR-ROCHE-788367

PATIENT
  Sex: Female
  Weight: 63 kg

DRUGS (3)
  1. XELODA [Suspect]
     Indication: BREAST CANCER
     Route: 048
     Dates: start: 20110101, end: 20110701
  2. ZOMETA [Concomitant]
  3. LEUPROLIDE ACETATE [Concomitant]

REACTIONS (1)
  - BLOOD CHOLESTEROL INCREASED [None]
